FAERS Safety Report 14146934 (Version 2)
Quarter: 2017Q4

REPORT INFORMATION
  Report Type: Spontaneous
  Country: US (occurrence: US)
  Receive Date: 20171031
  Receipt Date: 20171229
  Transmission Date: 20180321
  Serious: No
  Sender: FDA-Public Use
  Company Number: US-ASTRAZENECA-2017SF09700

PATIENT
  Age: 20323 Day
  Sex: Female
  Weight: 95.3 kg

DRUGS (1)
  1. BYDUREON [Suspect]
     Active Substance: EXENATIDE
     Indication: TYPE 2 DIABETES MELLITUS
     Route: 058
     Dates: start: 20171021

REACTIONS (9)
  - Injection site pain [Unknown]
  - Injection site pruritus [Recovering/Resolving]
  - Wrong technique in product usage process [Recovered/Resolved]
  - Product use complaint [Recovered/Resolved]
  - Intentional product misuse [Recovered/Resolved]
  - Needle track marks [Not Recovered/Not Resolved]
  - Injection site erythema [Recovered/Resolved]
  - Product quality issue [Recovered/Resolved]
  - Injection site bruising [Recovered/Resolved]

NARRATIVE: CASE EVENT DATE: 20171021
